FAERS Safety Report 17412645 (Version 1)
Quarter: 2020Q1

REPORT INFORMATION
  Report Type: Spontaneous
  Country: US (occurrence: US)
  Receive Date: 20200128
  Receipt Date: 20200128
  Transmission Date: 20200409
  Serious: No
  Sender: FDA-Public Use
  Company Number: None

PATIENT

DRUGS (3)
  1. TKO THC, FRUIT FLAVORING [Suspect]
     Active Substance: .DELTA.8-TETRAHYDROCANNABINOL\DEVICE\HERBALS
  2. NICOTINE-POSH, CALIPODS [Suspect]
     Active Substance: DEVICE\NICOTINE
  3. STIG THC-DANK VAPES, GLOW, CALIFORNIA CONFIDENTIAL [Suspect]
     Active Substance: .DELTA.8-TETRAHYDROCANNABINOL\DEVICE\HERBALS

REACTIONS (1)
  - Respiratory disorder [None]
